FAERS Safety Report 21132102 (Version 2)
Quarter: 2022Q3

REPORT INFORMATION
  Report Type: Spontaneous
  Country: US (occurrence: US)
  Receive Date: 20220726
  Receipt Date: 20220915
  Transmission Date: 20221027
  Serious: No
  Sender: FDA-Public Use
  Company Number: US-PFIZER INC-202200950931

PATIENT
  Age: 13 Year
  Sex: Male
  Weight: 70 kg

DRUGS (7)
  1. GENOTROPIN [Suspect]
     Active Substance: SOMATROPIN
     Indication: Growth hormone deficiency
     Dosage: 3 MG (INJECTION 6 DAYS A WEEK)
     Dates: start: 202111
  2. GENOTROPIN [Suspect]
     Active Substance: SOMATROPIN
     Dosage: 3 MG (INJECTION 6 DAYS A WEEK)
     Dates: start: 202111
  3. GENOTROPIN [Concomitant]
     Active Substance: SOMATROPIN
     Indication: Growth hormone deficiency
     Dosage: 3.0 MG (INJECTION 6 DAYS A WEEK)
  4. HYDROCORTISONE [Concomitant]
     Active Substance: HYDROCORTISONE
     Indication: Congenital renal disorder
     Dosage: 2 TABLETS IN THE MORNING, 1 TABLET AT 2PM AND 2 BEFORE HE GOES TO SLEEP
  5. FLUDROCORTISONE [Concomitant]
     Active Substance: FLUDROCORTISONE
     Dosage: 3/4 TABLETS IN THE MORNING AND 1/2 AT NIGHT
  6. SODIUM CHLORIDE [Concomitant]
     Active Substance: SODIUM CHLORIDE
     Dosage: UNK, 3X/DAY
  7. LETROZOLE [Concomitant]
     Active Substance: LETROZOLE
     Dosage: UNK, 1X/DAY

REACTIONS (4)
  - Drug dose omission by device [Unknown]
  - Device information output issue [Unknown]
  - Device issue [Unknown]
  - Product storage error [Unknown]

NARRATIVE: CASE EVENT DATE: 20220709
